FAERS Safety Report 18711944 (Version 1)
Quarter: 2021Q1

REPORT INFORMATION
  Report Type: Spontaneous
  Country: US (occurrence: US)
  Receive Date: 20210107
  Receipt Date: 20210107
  Transmission Date: 20210419
  Serious: Yes (Life-Threatening, Hospitalization)
  Sender: FDA-Public Use
  Company Number: None

PATIENT
  Age: 67 Year
  Sex: Female
  Weight: 76.95 kg

DRUGS (2)
  1. REPATHA [Suspect]
     Active Substance: EVOLOCUMAB
     Indication: HYPERLIPIDAEMIA
     Dosage: ?          OTHER FREQUENCY:2;?
     Route: 030
     Dates: start: 20200901, end: 20210102
  2. REPATHA [Concomitant]
     Active Substance: EVOLOCUMAB
     Dates: start: 20200901, end: 20210102

REACTIONS (1)
  - Staphylococcal sepsis [None]

NARRATIVE: CASE EVENT DATE: 20210101
